FAERS Safety Report 21419055 (Version 1)
Quarter: 2022Q4

REPORT INFORMATION
  Report Type: Spontaneous
  Country: CO (occurrence: CO)
  Receive Date: 20221006
  Receipt Date: 20221006
  Transmission Date: 20230113
  Serious: Yes (Death, Other)
  Sender: FDA-Public Use
  Company Number: CO-DSJP-DSE-2022-135577

PATIENT
  Age: 68 Year
  Sex: Male
  Weight: 88 kg

DRUGS (4)
  1. EFFIENT [Suspect]
     Active Substance: PRASUGREL HYDROCHLORIDE
     Indication: Acute myocardial infarction
     Dosage: 10 MG, QD
     Route: 048
     Dates: start: 20220819, end: 20220927
  2. ENALAPRIL [Concomitant]
     Active Substance: ENALAPRIL
     Indication: Acute myocardial infarction
     Dosage: 20 MG, QD
     Route: 048
     Dates: end: 20220927
  3. ATORVASTATIN [Concomitant]
     Active Substance: ATORVASTATIN
     Indication: Acute myocardial infarction
     Dosage: 20 MG, QD
     Route: 048
     Dates: end: 20220927
  4. ASPIRIN [Concomitant]
     Active Substance: ASPIRIN
     Indication: Acute myocardial infarction
     Dosage: 100 MG, QD
     Route: 048
     Dates: end: 20220927

REACTIONS (2)
  - Infarction [Fatal]
  - Infarction [Recovered/Resolved]

NARRATIVE: CASE EVENT DATE: 20220914
